FAERS Safety Report 14599989 (Version 7)
Quarter: 2020Q1

REPORT INFORMATION
  Report Type: Spontaneous
  Country: US (occurrence: US)
  Receive Date: 20180305
  Receipt Date: 20200103
  Transmission Date: 20200409
  Serious: No
  Sender: FDA-Public Use
  Company Number: US-PFIZER INC-2015121331

PATIENT
  Age: 73 Year
  Sex: Female
  Weight: 91.63 kg

DRUGS (3)
  1. ARTHROTEC [Suspect]
     Active Substance: DICLOFENAC SODIUM\MISOPROSTOL
     Indication: POLYARTHRITIS
  2. AMLODIPINE [Concomitant]
     Active Substance: AMLODIPINE BESYLATE
     Indication: HYPERTENSION
     Dosage: 5 MG, UNK
  3. ARTHROTEC [Suspect]
     Active Substance: DICLOFENAC SODIUM\MISOPROSTOL
     Indication: PAIN
     Dosage: 75 MG, 2X/DAY

REACTIONS (4)
  - Ear discomfort [Unknown]
  - Hypoacusis [Unknown]
  - Malaise [Unknown]
  - Sinusitis [Unknown]
